FAERS Safety Report 8215193-8 (Version None)
Quarter: 2012Q1

REPORT INFORMATION
  Report Type: 
  Country: None (occurrence: None)
  Receive Date: 20120316
  Receipt Date: 20120307
  Transmission Date: 20120608
  Serious: Yes (Hospitalization)
  Sender: FDA-Public Use
  Company Number: GB-JNJFOC-20110200608

PATIENT
  Sex: Male

DRUGS (20)
  1. ABIRATERONE ACETATE [Suspect]
     Route: 048
  2. ALBUTEROL [Concomitant]
     Indication: ASTHMA
     Route: 055
     Dates: start: 20001208
  3. BUDESONIDE [Concomitant]
     Indication: ASTHMA
     Route: 055
     Dates: start: 20001208
  4. HYPROMELLOSE [Concomitant]
     Indication: GLAUCOMA
     Route: 047
     Dates: start: 20030808
  5. QUININE SULFATE [Concomitant]
     Indication: MUSCLE SPASMS
     Route: 048
     Dates: start: 20061016
  6. BENDROFLUAZIDE [Concomitant]
     Indication: OEDEMA PERIPHERAL
     Route: 048
     Dates: start: 20100423
  7. LATANOPROST [Concomitant]
     Indication: GLAUCOMA
     Route: 047
     Dates: start: 19991116
  8. FLUCLOXACILLIN [Concomitant]
     Indication: SKIN ULCER
     Route: 048
     Dates: start: 20110101
  9. PROGYNOVA [Concomitant]
     Indication: HORMONE THERAPY
     Route: 062
     Dates: start: 20061031
  10. BENDROFLUAZIDE [Concomitant]
     Route: 048
     Dates: start: 20101102
  11. ABIRATERONE ACETATE [Suspect]
     Indication: PROSTATE CANCER METASTATIC
     Route: 048
     Dates: start: 20100422, end: 20110125
  12. PREDNISOLONE [Suspect]
     Indication: PROSTATE CANCER METASTATIC
     Route: 048
     Dates: start: 20100422
  13. ZOLADEX [Concomitant]
     Route: 058
     Dates: start: 20100422
  14. CALCEOS [Concomitant]
     Indication: OSTEOPOROSIS
     Route: 048
     Dates: start: 20001108
  15. ALGESAL SURACTIVE [Concomitant]
     Indication: TORTICOLLIS
     Route: 061
     Dates: start: 20100401
  16. WARFARIN SODIUM [Concomitant]
     Indication: PULMONARY EMBOLISM
     Route: 048
     Dates: start: 20101007
  17. ZOLADEX [Concomitant]
     Indication: HORMONE THERAPY
     Route: 058
     Dates: start: 20040201
  18. TRUSOPT [Concomitant]
     Indication: GLAUCOMA
     Route: 047
     Dates: start: 20010905
  19. SLOW-K [Concomitant]
     Indication: HYPOKALAEMIA
     Route: 048
     Dates: start: 20100512
  20. ACETAMINOPHEN [Concomitant]
     Indication: PAIN IN EXTREMITY
     Route: 048
     Dates: start: 20101102

REACTIONS (1)
  - INFECTED SKIN ULCER [None]
